FAERS Safety Report 8968870 (Version 1)
Quarter: 2012Q4

REPORT INFORMATION
  Report Type: 
  Country: US (occurrence: US)
  Receive Date: 20121218
  Receipt Date: 20121218
  Transmission Date: 20130627
  Serious: No
  Sender: FDA-Public Use
  Company Number: US-BRISTOL-MYERS SQUIBB COMPANY-16754251

PATIENT
  Age: 59 Year
  Sex: Female

DRUGS (4)
  1. ABILIFY [Suspect]
     Indication: DEPRESSION
  2. EFFEXOR [Suspect]
     Indication: DEPRESSION
  3. OMEPRAZOLE [Concomitant]
  4. CLONAZEPAM [Concomitant]

REACTIONS (1)
  - Abdominal pain upper [Unknown]
